FAERS Safety Report 8447027 (Version 7)
Quarter: 2012Q4

REPORT INFORMATION
  Report Type: 
  Country: US (occurrence: US)
  Receive Date: 20120308
  Receipt Date: 20121221
  Transmission Date: 20130627
  Serious: Yes (Hospitalization)
  Sender: FDA-Public Use
  Company Number: US-JNJFOC-20120300255

PATIENT
  Sex: Female
  Weight: 84.37 kg

DRUGS (19)
  1. EXTRA STRENGTH TYLENOL [Suspect]
     Indication: BREAKTHROUGH PAIN
     Route: 048
     Dates: end: 20111031
  2. TYLENOL EXTRA STRENGTH [Suspect]
     Indication: BREAKTHROUGH PAIN
     Route: 048
     Dates: end: 20111031
  3. ACETAMINOPHEN [Suspect]
     Route: 048
  4. ACETAMINOPHEN [Suspect]
     Indication: PAIN
     Dosage: as needed
     Route: 048
  5. LORTAB [Suspect]
     Indication: ANALGESIC THERAPY
     Dosage: 10/500 every 4-6 hours as needed
     Route: 048
  6. METOPROLOL [Concomitant]
     Indication: HYPERTENSION
     Route: 065
  7. LASIX [Concomitant]
     Indication: DIURETIC THERAPY
     Route: 065
  8. ANTI-HYPERTENSIVE [Concomitant]
     Indication: BLOOD PRESSURE
     Route: 065
  9. POTASSIUM [Concomitant]
     Indication: MINERAL SUPPLEMENTATION
     Route: 065
  10. FLEXERIL [Concomitant]
     Indication: BACK DISORDER
     Route: 065
  11. OTHER DRUGS (UNSPECIFIED) [Concomitant]
     Indication: PRODUCT USED FOR UNKNOWN INDICATION
     Route: 065
  12. OTHER DRUGS (UNSPECIFIED) [Concomitant]
     Indication: PRODUCT USED FOR UNKNOWN INDICATION
     Route: 065
  13. OTHER DRUGS (UNSPECIFIED) [Concomitant]
     Indication: PRODUCT USED FOR UNKNOWN INDICATION
     Route: 065
  14. OTHER DRUGS (UNSPECIFIED) [Concomitant]
     Indication: GASTRIC DISORDER
     Route: 065
  15. OMEPRAZOLE [Concomitant]
     Indication: GASTROOESOPHAGEAL REFLUX DISEASE
     Route: 065
  16. ALBUTEROL [Concomitant]
     Dosage: 2 puffs
     Route: 065
  17. CETRIZINE [Concomitant]
     Indication: HYPERSENSITIVITY
     Route: 065
  18. LEXAPRO [Concomitant]
     Indication: ANXIETY
     Route: 065
  19. LISINOPRIL [Concomitant]
     Indication: HYPERTENSION
     Route: 065

REACTIONS (7)
  - Toxicity to various agents [Recovering/Resolving]
  - Liver injury [Not Recovered/Not Resolved]
  - Abdominal cavity drainage [Unknown]
  - Hepatitis C [Unknown]
  - Hepatic cirrhosis [Unknown]
  - Drug administration error [Recovered/Resolved]
  - Weight increased [Unknown]
